FAERS Safety Report 7359640-2 (Version None)
Quarter: 2011Q1

REPORT INFORMATION
  Report Type: 
  Country: None (occurrence: None)
  Receive Date: 20110317
  Receipt Date: 20110315
  Transmission Date: 20110831
  Serious: Yes (Other)
  Sender: FDA-Public Use
  Company Number: US-PFIZER INC-2011043287

PATIENT
  Age: 64 Year
  Sex: Female

DRUGS (3)
  1. GEODON [Suspect]
     Indication: PSYCHOTIC DISORDER
     Dosage: 80 MG, UNK
     Dates: start: 20080501
  2. GEODON [Suspect]
     Dosage: 160 MG, UNK
     Dates: end: 20101001
  3. PRISTIQ [Suspect]

REACTIONS (1)
  - TARDIVE DYSKINESIA [None]
